FAERS Safety Report 17028583 (Version 2)
Quarter: 2021Q4

REPORT INFORMATION
  Report Type: Spontaneous
  Country: US (occurrence: US)
  Receive Date: 20191113
  Receipt Date: 20211214
  Transmission Date: 20220303
  Serious: Yes (Hospitalization)
  Sender: FDA-Public Use
  Company Number: US-SUN PHARMACEUTICAL INDUSTRIES LTD-2019R1-226859

PATIENT
  Age: 48 Year
  Sex: Male

DRUGS (1)
  1. LISINOPRIL [Suspect]
     Active Substance: LISINOPRIL
     Indication: Hypertension
     Dosage: UNK
     Route: 065

REACTIONS (4)
  - Angioedema [Recovered/Resolved]
  - Venous occlusion [Recovered/Resolved]
  - Lymphatic obstruction [Recovered/Resolved]
  - Bite [Recovered/Resolved]
